FAERS Safety Report 24757373 (Version 7)
Quarter: 2025Q4

REPORT INFORMATION
  Report Type: Report from Study
  Country: US (occurrence: US)
  Receive Date: 20241220
  Receipt Date: 20251024
  Transmission Date: 20260117
  Serious: Yes (Hospitalization, Other)
  Sender: RECORDATI
  Company Number: US-RECORDATI RARE DISEASE INC.-2024009826

PATIENT
  Age: 68 Year
  Sex: Female
  Weight: 62.091 kg

DRUGS (16)
  1. SIGNIFOR LAR [Suspect]
     Active Substance: PASIREOTIDE PAMOATE
     Indication: Short-bowel syndrome
     Dosage: 60 MG, Q3W
     Route: 058
     Dates: start: 20240315, end: 202502
  2. SIGNIFOR LAR [Suspect]
     Active Substance: PASIREOTIDE PAMOATE
     Indication: Hypoglycaemia
     Dosage: UNK (ABDOMINAL ROUTE)
     Route: 058
     Dates: start: 202504
  3. SIGNIFOR LAR [Suspect]
     Active Substance: PASIREOTIDE PAMOATE
     Indication: Nesidioblastosis
  4. SIGNIFOR LAR [Suspect]
     Active Substance: PASIREOTIDE PAMOATE
     Indication: Off label use
  5. SIGNIFOR [Suspect]
     Active Substance: PASIREOTIDE DIASPARTATE
     Indication: Short-bowel syndrome
     Dosage: 0.6 MILLIGRAM, BID
     Route: 058
     Dates: start: 20250510
  6. SIGNIFOR [Suspect]
     Active Substance: PASIREOTIDE DIASPARTATE
     Indication: Hypoglycaemia
     Dosage: (OCCASIONALLY), PRN
     Route: 058
  7. SIGNIFOR [Suspect]
     Active Substance: PASIREOTIDE DIASPARTATE
     Indication: Nesidioblastosis
  8. SIGNIFOR [Suspect]
     Active Substance: PASIREOTIDE DIASPARTATE
     Indication: Off label use
  9. PREDNISONE [Suspect]
     Active Substance: PREDNISONE
     Indication: Product used for unknown indication
     Dosage: 10 MG, QD (TABLET, QAM)
     Route: 048
     Dates: start: 20240110
  10. OCTREOTIDE [Concomitant]
     Active Substance: OCTREOTIDE
     Indication: Hypoglycaemia
     Dosage: UNK
  11. DIAZOXIDE [Concomitant]
     Active Substance: DIAZOXIDE
     Indication: Product used for unknown indication
     Dosage: 40 MILLIGRAM PER MILLILITRE, TID (SUSPENSION 50 MG/ML)
     Route: 048
     Dates: start: 20240110, end: 20250422
  12. DICYCLOMINE HYDROCHLORIDE [Concomitant]
     Active Substance: DICYCLOMINE HYDROCHLORIDE
     Indication: Product used for unknown indication
     Dosage: 10 MG, TID (CAPSULE)
     Route: 048
     Dates: start: 20230303
  13. GABAPENTIN [Concomitant]
     Active Substance: GABAPENTIN
     Indication: Product used for unknown indication
     Dosage: 300 MG, BID (CAPSULE 100 MG)
     Route: 048
     Dates: start: 20240223
  14. IMODIUM A-D [Concomitant]
     Active Substance: LOPERAMIDE HYDROCHLORIDE
     Indication: Product used for unknown indication
     Dosage: 2 MG, PRN (TABLET)
     Route: 048
     Dates: start: 20210404
  15. ONDANSETRON HYDROCHLORIDE [Concomitant]
     Active Substance: ONDANSETRON HYDROCHLORIDE
     Indication: Product used for unknown indication
     Dosage: 8 MG, PRN (TABLET)
     Route: 048
     Dates: start: 20190201
  16. PROMETHAZINE HYDROCHLORIDE [Concomitant]
     Active Substance: PROMETHAZINE HYDROCHLORIDE
     Indication: Product used for unknown indication
     Dosage: 25 MG, PRN (TABLET)
     Route: 048
     Dates: start: 20241001

REACTIONS (15)
  - Muscle spasms [Not Recovered/Not Resolved]
  - Diarrhoea [Not Recovered/Not Resolved]
  - Nausea [Not Recovered/Not Resolved]
  - Headache [Not Recovered/Not Resolved]
  - Drug ineffective for unapproved indication [Recovered/Resolved]
  - Vitamin D decreased [Unknown]
  - Illness [Unknown]
  - Brain fog [Unknown]
  - Visual impairment [Unknown]
  - Abdominal discomfort [Not Recovered/Not Resolved]
  - Product dose omission issue [Recovered/Resolved]
  - Wrong technique in product usage process [Recovered/Resolved]
  - Product administration error [Recovered/Resolved]
  - Off label use [Recovered/Resolved]
  - Incorrect route of product administration [Recovered/Resolved]

NARRATIVE: CASE EVENT DATE: 20240315
